FAERS Safety Report 4536900-1 (Version None)
Quarter: 2004Q4

REPORT INFORMATION
  Report Type: 
  Country: None (occurrence: None)
  Receive Date: 20041220
  Receipt Date: 20041206
  Transmission Date: 20050328
  Serious: Yes (Death)
  Sender: FDA-Public Use
  Company Number: 2004UW10366

PATIENT
  Age: 76 Year
  Sex: Male
  Weight: 92.5338 kg

DRUGS (11)
  1. IRESSA [Suspect]
     Indication: LUNG NEOPLASM MALIGNANT
     Dosage: 250 MG DAILY PO
     Route: 048
     Dates: start: 20020315
  2. IRESSA [Suspect]
     Indication: LUNG NEOPLASM MALIGNANT
     Dosage: 250 MG DAILY PO
     Route: 048
     Dates: start: 20040323
  3. CARDURA /IRE/ [Concomitant]
  4. FLOMAX [Concomitant]
  5. LIPITOR [Concomitant]
  6. PREVACID [Concomitant]
  7. SINGULAIR [Concomitant]
  8. LASIX /SCH/ [Concomitant]
  9. MULTI-VITAMIN [Concomitant]
  10. PROVENTIL [Concomitant]
  11. ATROVENT [Concomitant]

REACTIONS (14)
  - ATELECTASIS [None]
  - CARDIAC FAILURE CONGESTIVE [None]
  - CHRONIC OBSTRUCTIVE AIRWAYS DISEASE EXACERBATED [None]
  - CONDITION AGGRAVATED [None]
  - DECREASED APPETITE [None]
  - DISEASE PROGRESSION [None]
  - INFECTION [None]
  - LUNG NEOPLASM MALIGNANT [None]
  - MALIGNANT NEOPLASM PROGRESSION [None]
  - PERICARDIAL EFFUSION [None]
  - PLEURAL EFFUSION [None]
  - PNEUMONIA [None]
  - PULMONARY HILUM MASS [None]
  - RESPIRATORY RATE INCREASED [None]
